FAERS Safety Report 4967633-5 (Version None)
Quarter: 2006Q2

REPORT INFORMATION
  Report Type: 
  Country: None (occurrence: None)
  Receive Date: 20060405
  Receipt Date: 20060320
  Transmission Date: 20061013
  Serious: Yes (Other)
  Sender: FDA-Public Use
  Company Number: 2006VX000348

PATIENT
  Sex: Female

DRUGS (1)
  1. MESTINON [Suspect]
     Indication: MYASTHENIC SYNDROME
     Dosage: 8 DF; QD; PO
     Route: 048

REACTIONS (5)
  - ABORTION INDUCED [None]
  - AMNIOTIC FLUID VOLUME INCREASED [None]
  - DRUG EXPOSURE DURING PREGNANCY [None]
  - PREGNANCY [None]
  - UTERINE HYPERTONUS [None]
